FAERS Safety Report 6828846-0 (Version None)
Quarter: 2010Q3

REPORT INFORMATION
  Report Type: 
  Country: None (occurrence: None)
  Receive Date: 20100709
  Receipt Date: 20070221
  Transmission Date: 20110219
  Serious: No
  Sender: FDA-Public Use
  Company Number: US-PFIZER INC-2007014973

PATIENT
  Sex: Female
  Weight: 99.79 kg

DRUGS (5)
  1. CHANTIX [Suspect]
     Indication: SMOKING CESSATION THERAPY
     Dates: start: 20070219
  2. FELDENE [Concomitant]
  3. OSTEO BI-FLEX [Concomitant]
     Indication: ARTHROPATHY
  4. TRAMADOL HCL [Concomitant]
  5. 7-DAY SMOKE AWAY BASIC [Concomitant]

REACTIONS (1)
  - DRUG ADMINISTRATION ERROR [None]
